FAERS Safety Report 8472646-5 (Version None)
Quarter: 2012Q2

REPORT INFORMATION
  Report Type: 
  Country: None (occurrence: None)
  Receive Date: 20120627
  Receipt Date: 20120517
  Transmission Date: 20120825
  Serious: No
  Sender: FDA-Public Use
  Company Number: US-AMGEN-USASP2012026372

PATIENT
  Age: 82 Year
  Sex: Female
  Weight: 79 kg

DRUGS (5)
  1. TRICOR [Concomitant]
     Indication: BLOOD TRIGLYCERIDES INCREASED
  2. PROCRIT [Suspect]
     Indication: ANAEMIA
     Dosage: 5000 IU, Q2WK
     Route: 058
  3. LEVOTHYROXINE [Concomitant]
  4. MULTI-VITAMIN [Concomitant]
  5. TRAMADOL HCL [Concomitant]
     Indication: PAIN

REACTIONS (6)
  - PAIN IN EXTREMITY [None]
  - RESTLESS LEGS SYNDROME [None]
  - INSOMNIA [None]
  - SNEEZING [None]
  - LIMB DISCOMFORT [None]
  - NEUROPATHY PERIPHERAL [None]
